FAERS Safety Report 7327477-6 (Version None)
Quarter: 2011Q1

REPORT INFORMATION
  Report Type: 
  Country: None (occurrence: None)
  Receive Date: 20110303
  Receipt Date: 20110222
  Transmission Date: 20110831
  Serious: Yes (Hospitalization)
  Sender: FDA-Public Use
  Company Number: DK-BIOGENIDEC-2011BI000535

PATIENT
  Age: 32 Year
  Sex: Female

DRUGS (6)
  1. WARFARIN SODIUM [Concomitant]
  2. TYSABRI [Suspect]
     Indication: MULTIPLE SCLEROSIS
     Route: 042
     Dates: start: 20091013, end: 20101112
  3. RAMIPRIL [Concomitant]
  4. CHAMPIX [Concomitant]
  5. GLUCOSAMINE [Concomitant]
  6. PREDNISOLONE [Concomitant]

REACTIONS (1)
  - HENOCH-SCHONLEIN PURPURA [None]
